FAERS Safety Report 13824736 (Version 1)
Quarter: 2017Q3

REPORT INFORMATION
  Report Type: Spontaneous
  Country: US (occurrence: US)
  Receive Date: 20170801
  Receipt Date: 20170801
  Transmission Date: 20171127
  Serious: Yes (Other)
  Sender: FDA-Public Use
  Company Number: None

PATIENT
  Age: 58 Year
  Sex: Female
  Weight: 64.8 kg

DRUGS (10)
  1. ONDANSETRON DISINTEGRATING TABLET 8 MG [Suspect]
     Active Substance: ONDANSETRON
     Indication: NAUSEA
     Dosage: ?          QUANTITY:1 TABLET(S);?
     Route: 048
  2. ZOFRAN [Concomitant]
     Active Substance: ONDANSETRON HYDROCHLORIDE
  3. VITAMIN D [Concomitant]
     Active Substance: CHOLECALCIFEROL
  4. MAGNESIUM [Concomitant]
     Active Substance: MAGNESIUM
  5. KRILL OIL [Concomitant]
     Active Substance: DIETARY SUPPLEMENT
  6. PRILOSEC [Concomitant]
     Active Substance: OMEPRAZOLE MAGNESIUM
  7. VITAMIN B12 [Concomitant]
     Active Substance: CYANOCOBALAMIN
  8. CALCIUM CITRATE [Concomitant]
     Active Substance: CALCIUM CITRATE
  9. PROLIA [Suspect]
     Active Substance: DENOSUMAB
     Indication: OSTEOPOROSIS
     Dosage: OTHER FREQUENCY:Q 6 MONTHS;OTHER ROUTE:INJECTED SUB Q?
     Dates: start: 20161116
  10. LEVSIN [Concomitant]
     Active Substance: HYOSCYAMINE SULFATE

REACTIONS (4)
  - Back pain [None]
  - Arthralgia [None]
  - Bone pain [None]
  - Drug interaction [None]

NARRATIVE: CASE EVENT DATE: 20170730
